FAERS Safety Report 6042824-3 (Version None)
Quarter: 2009Q1

REPORT INFORMATION
  Report Type: 
  Country: None (occurrence: None)
  Receive Date: 20090119
  Receipt Date: 20090113
  Transmission Date: 20090719
  Serious: Yes (Death, Life-Threatening)
  Sender: FDA-Public Use
  Company Number: JP-BAYER-200812838BYL

PATIENT
  Age: 61 Year
  Sex: Male
  Weight: 63 kg

DRUGS (4)
  1. NEXAVAR [Suspect]
     Indication: RENAL CELL CARCINOMA STAGE IV
     Dosage: TOTAL DAILY DOSE: 800 MG  UNIT DOSE: 200 MG
     Route: 048
     Dates: start: 20081006, end: 20081019
  2. NEXAVAR [Suspect]
     Dosage: UNIT DOSE: 200 MG
     Route: 048
     Dates: start: 20081020, end: 20081022
  3. OXYCONTIN [Concomitant]
     Route: 048
     Dates: start: 20081006
  4. CONFATANIN [Concomitant]
     Route: 048
     Dates: start: 20081006

REACTIONS (4)
  - DEATH [None]
  - HYPERKALAEMIA [None]
  - VOMITING [None]
  - WHITE BLOOD CELL COUNT DECREASED [None]
